FAERS Safety Report 14761654 (Version 1)
Quarter: 2018Q2

REPORT INFORMATION
  Report Type: Spontaneous
  Country: US (occurrence: US)
  Receive Date: 20180416
  Receipt Date: 20180416
  Transmission Date: 20180711
  Serious: No
  Sender: FDA-Public Use
  Company Number: US-BION-006212

PATIENT
  Age: 69 Year
  Sex: Male
  Weight: 83 kg

DRUGS (6)
  1. ALEVE [Suspect]
     Active Substance: NAPROXEN SODIUM
     Indication: PAIN
     Dosage: TABLET/CAPLET/GELCAP?AS NEEDED
     Route: 048
     Dates: start: 2014
  2. BAYER ASPIRIN [Concomitant]
     Active Substance: ASPIRIN
     Indication: CEREBROVASCULAR ACCIDENT PROPHYLAXIS
     Route: 065
  3. VITAMINS NOS [Concomitant]
     Active Substance: VITAMINS
  4. DIGOXIN. [Concomitant]
     Active Substance: DIGOXIN
  5. METOPROLOL. [Concomitant]
     Active Substance: METOPROLOL
  6. CALCIUM CARBONATE/CALCIUM LACTOGLUCONATE [Concomitant]

REACTIONS (2)
  - Product physical consistency issue [Unknown]
  - Poor quality drug administered [Not Recovered/Not Resolved]
